FAERS Safety Report 6537535-1 (Version None)
Quarter: 2010Q1

REPORT INFORMATION
  Report Type: 
  Country: None (occurrence: None)
  Receive Date: 20100114
  Receipt Date: 20100104
  Transmission Date: 20100710
  Serious: Yes (Other)
  Sender: FDA-Public Use
  Company Number: US-ELI_LILLY_AND_COMPANY-US200909003987

PATIENT
  Age: 55 Year
  Sex: Male
  Weight: 90.703 kg

DRUGS (4)
  1. CYMBALTA [Suspect]
     Indication: DEPRESSION
     Dosage: 60 MG, UNK
     Dates: start: 20070905, end: 20090511
  2. ZYPREXA [Concomitant]
     Indication: SCHIZOPHRENIA
     Dosage: 40 MG, UNK
  3. TRAZODONE HCL [Concomitant]
     Indication: SLEEP DISORDER
  4. ALCOHOL [Concomitant]
     Dosage: 1 D/F, OTHER

REACTIONS (2)
  - ALANINE AMINOTRANSFERASE INCREASED [None]
  - ASPARTATE AMINOTRANSFERASE INCREASED [None]
